FAERS Safety Report 9999245 (Version 2)
Quarter: 2014Q1

REPORT INFORMATION
  Report Type: Spontaneous
  Country: US (occurrence: US)
  Receive Date: 20140312
  Receipt Date: 20140312
  Transmission Date: 20141002
  Serious: Yes (Hospitalization, Other)
  Sender: FDA-Public Use
  Company Number: US-ELI_LILLY_AND_COMPANY-US201312006995

PATIENT
  Age: 50 Year
  Sex: Male

DRUGS (9)
  1. ZYPREXA [Suspect]
     Indication: SCHIZOAFFECTIVE DISORDER
     Dosage: 30 MG, UNKNOWN
     Route: 065
     Dates: start: 200610
  2. ZYPREXA [Suspect]
     Indication: BIPOLAR DISORDER
     Dosage: 20 MG, UNKNOWN
     Route: 065
     Dates: start: 20001006
  3. ZYPREXA [Suspect]
     Dosage: 5 MG, UNKNOWN
     Route: 065
     Dates: start: 200811
  4. ZYPREXA [Suspect]
     Dosage: 25 MG, UNKNOWN
     Route: 065
     Dates: start: 200904
  5. ZYPREXA [Suspect]
     Dosage: 30 MG, UNKNOWN
     Route: 065
     Dates: start: 200904
  6. ZYPREXA [Suspect]
     Dosage: 40 MG, QD
     Route: 065
     Dates: start: 201108
  7. DEPAKOTE [Concomitant]
     Indication: PRODUCT USED FOR UNKNOWN INDICATION
     Dosage: 1 DF, UNKNOWN
     Route: 065
  8. WELLBUTRIN XL [Concomitant]
     Indication: PRODUCT USED FOR UNKNOWN INDICATION
     Dosage: 1 DF, UNKNOWN
     Route: 065
  9. VISTARIL                           /00058402/ [Concomitant]
     Indication: PRODUCT USED FOR UNKNOWN INDICATION
     Dosage: 1 DF, UNKNOWN
     Route: 065

REACTIONS (2)
  - Schizoaffective disorder bipolar type [Unknown]
  - Prescribed overdose [Not Recovered/Not Resolved]
